FAERS Safety Report 8063516-5 (Version None)
Quarter: 2012Q1

REPORT INFORMATION
  Report Type: 
  Country: None (occurrence: None)
  Receive Date: 20120123
  Receipt Date: 20120116
  Transmission Date: 20120608
  Serious: Yes (Hospitalization, Other)
  Sender: FDA-Public Use
  Company Number: US-ELI_LILLY_AND_COMPANY-US201201005515

PATIENT
  Sex: Female

DRUGS (6)
  1. HUMALOG [Suspect]
     Indication: DIABETES MELLITUS
     Dosage: UNK, PRN
  2. SYNTHROID [Concomitant]
     Dosage: UNK
  3. LANTUS [Concomitant]
     Dosage: 70 U, UNK
  4. LISINOPRIL [Concomitant]
     Dosage: UNK
  5. ZOCOR [Concomitant]
     Dosage: UNK
  6. LASIX [Concomitant]
     Dosage: UNK

REACTIONS (4)
  - HUNGER [None]
  - ATRIAL FIBRILLATION [None]
  - BLOOD GLUCOSE INCREASED [None]
  - INSOMNIA [None]
